FAERS Safety Report 8258749-9 (Version None)
Quarter: 2012Q2

REPORT INFORMATION
  Report Type: 
  Country: None (occurrence: None)
  Receive Date: 20120404
  Receipt Date: 20120404
  Transmission Date: 20120825
  Serious: Yes (Life-Threatening)
  Sender: FDA-Public Use
  Company Number: None

PATIENT
  Age: 59 Year
  Sex: Female
  Weight: 61.234 kg

DRUGS (1)
  1. BOTOX [Suspect]
     Indication: TORTICOLLIS
     Dosage: 50 UNITS STERNCLOIDMASTOID MUS
     Route: 030
     Dates: start: 20110509, end: 20110509

REACTIONS (6)
  - DYSPNOEA [None]
  - TINNITUS [None]
  - ASTHENIA [None]
  - INFLUENZA [None]
  - HEADACHE [None]
  - DYSPHAGIA [None]
